FAERS Safety Report 12443711 (Version 1)
Quarter: 2016Q2

REPORT INFORMATION
  Report Type: Spontaneous
  Country: CN (occurrence: CN)
  Receive Date: 20160607
  Receipt Date: 20160607
  Transmission Date: 20160815
  Serious: Yes (Other)
  Sender: FDA-Public Use
  Company Number: CN-FRESENIUS KABI-FK201603371

PATIENT
  Age: 91 Year
  Sex: Male

DRUGS (2)
  1. INTRALIPID [Suspect]
     Active Substance: EGG PHOSPHOLIPIDS\GLYCERIN\SOYBEAN OIL
     Indication: NUTRITIONAL SUPPLEMENTATION
     Route: 041
     Dates: start: 20151002, end: 20151003
  2. KAISHI [Suspect]
     Indication: CEREBRAL INFARCTION
     Route: 041
     Dates: start: 20150930, end: 20151003

REACTIONS (5)
  - Tremor [None]
  - Sneezing [Recovering/Resolving]
  - Hyperpyrexia [Recovering/Resolving]
  - Chills [Recovering/Resolving]
  - Chest discomfort [None]

NARRATIVE: CASE EVENT DATE: 20151002
